FAERS Safety Report 5529172-2 (Version None)
Quarter: 2007Q4

REPORT INFORMATION
  Report Type: 
  Country: None (occurrence: None)
  Receive Date: 20071129
  Receipt Date: 20070327
  Transmission Date: 20080405
  Serious: No
  Sender: FDA-Public Use
  Company Number: A0644858A

PATIENT
  Age: 52 Year
  Sex: Female

DRUGS (5)
  1. WELLBUTRIN SR [Suspect]
     Indication: DEPRESSION
     Dosage: 200MG PER DAY
     Route: 048
  2. ZOLOFT [Concomitant]
  3. LEVOXYL [Concomitant]
  4. TEMAZEPAM [Concomitant]
  5. KLONOPIN [Concomitant]

REACTIONS (1)
  - ALOPECIA [None]
